FAERS Safety Report 8824931 (Version 1)
Quarter: 2012Q4

REPORT INFORMATION
  Report Type: 
  Country: CN (occurrence: CN)
  Receive Date: 20121004
  Receipt Date: 20121004
  Transmission Date: 20130627
  Serious: Yes (Other)
  Sender: FDA-Public Use
  Company Number: CN-JNJFOC-20120912687

PATIENT
  Sex: Male

DRUGS (5)
  1. EXTRA STRENGTH TYLENOL [Suspect]
     Indication: PYREXIA
     Route: 048
     Dates: start: 20090518, end: 20090518
  2. EXTRA STRENGTH TYLENOL [Suspect]
     Indication: NASOPHARYNGITIS
     Route: 048
     Dates: start: 20090518, end: 20090518
  3. CEPHALOSPORINS [Suspect]
     Indication: PYREXIA
     Route: 048
     Dates: start: 20090518, end: 20090518
  4. AMOXICILLIN [Suspect]
     Indication: PYREXIA
     Route: 048
  5. ACETAMINOPHEN\CAFFEINE\PROPYPHENAZONE [Suspect]
     Indication: PYREXIA
     Route: 048

REACTIONS (1)
  - Drug-induced liver injury [Recovering/Resolving]
